FAERS Safety Report 11313383 (Version 2)
Quarter: 2015Q3

REPORT INFORMATION
  Report Type: Spontaneous
  Country: US (occurrence: US)
  Receive Date: 20150727
  Receipt Date: 20150810
  Transmission Date: 20151125
  Serious: No
  Sender: FDA-Public Use
  Company Number: GXBR2015US001646

PATIENT
  Age: 62 Year
  Sex: Female

DRUGS (1)
  1. AMOXICILLIN CAPSULES, USP [Suspect]
     Active Substance: AMOXICILLIN
     Indication: TOOTH ABSCESS
     Dosage: 250 MG, TID2SDO
     Route: 048
     Dates: start: 20150625, end: 20150630

REACTIONS (6)
  - Rosacea [Unknown]
  - Nasal discomfort [Unknown]
  - Erythema [Unknown]
  - Drug ineffective [Not Recovered/Not Resolved]
  - Migraine with aura [Recovered/Resolved]
  - Skin irritation [Unknown]

NARRATIVE: CASE EVENT DATE: 20150625
